FAERS Safety Report 9259905 (Version 2)
Quarter: 2013Q3

REPORT INFORMATION
  Report Type: Spontaneous
  Country: US (occurrence: US)
  Receive Date: 20130429
  Receipt Date: 20130910
  Transmission Date: 20140515
  Serious: Yes (Hospitalization, Disabling)
  Sender: FDA-Public Use
  Company Number: US-ASTRAZENECA-2013SE27556

PATIENT
  Age: 484 Month
  Sex: Male

DRUGS (22)
  1. NEXIUM [Suspect]
     Indication: DYSPEPSIA
     Dosage: THREE TIMES DAILY
     Route: 048
     Dates: start: 1996, end: 2005
  2. NEXIUM [Suspect]
     Indication: GASTROOESOPHAGEAL REFLUX DISEASE
     Dosage: THREE TIMES DAILY
     Route: 048
     Dates: start: 1996, end: 2005
  3. PRILOSEC [Suspect]
     Route: 048
  4. PROTONIX [Concomitant]
  5. PREVACID [Concomitant]
     Indication: DYSPEPSIA
     Dosage: ONCE A DAY
  6. PREVACID [Concomitant]
     Indication: GASTROOESOPHAGEAL REFLUX DISEASE
     Dosage: ONCE A DAY
  7. ZANTAC [Concomitant]
     Dosage: OTC
  8. LIPITOR [Concomitant]
  9. GABAPENTIN [Concomitant]
  10. EXFORGE [Concomitant]
  11. ALLOPURINOL [Concomitant]
  12. COLCRYS [Concomitant]
  13. PROMETHAZINE [Concomitant]
  14. HYDROCODONE-ACETAMINOPHEN [Concomitant]
  15. MELOXICAM [Concomitant]
  16. CYCLOBENZAPRINE [Concomitant]
  17. STEROIDS [Concomitant]
     Indication: PAIN
  18. APO-ATORVASTATIN [Concomitant]
     Indication: PAIN
  19. APO-NAPROXEN [Concomitant]
     Indication: PAIN
  20. LYRICA [Concomitant]
     Indication: PAIN
  21. ASPIRIN [Concomitant]
     Indication: PAIN
  22. ROLAIDS [Concomitant]
     Indication: PAIN

REACTIONS (16)
  - Intervertebral disc disorder [Unknown]
  - Osteoporosis [Unknown]
  - Bone disorder [Unknown]
  - Multiple fractures [Unknown]
  - Limb discomfort [Unknown]
  - Arthropathy [Unknown]
  - Heart rate increased [Unknown]
  - Inflammation [Unknown]
  - Arthritis [Unknown]
  - Calcium deficiency [Unknown]
  - Rheumatoid arthritis [Unknown]
  - Abdominal discomfort [Unknown]
  - Headache [Unknown]
  - Myalgia [Unknown]
  - Stress [Unknown]
  - Depression [Unknown]
